FAERS Safety Report 7382411 (Version 4)
Quarter: 2013Q4

REPORT INFORMATION
  Report Type: Spontaneous
  Country: IT (occurrence: IT)
  Receive Date: 20100510
  Receipt Date: 20131205
  Transmission Date: 20140711
  Serious: Yes (Hospitalization, Other)
  Sender: FDA-Public Use
  Company Number: IT-CELGENEUS-083-20785-10042211

PATIENT
  Age: 74 Year
  Sex: Female

DRUGS (2)
  1. THALIDOMIDE CELGENE [Suspect]
     Indication: PLASMA CELL MYELOMA
     Dosage: 100 MILLIGRAM
     Route: 048
     Dates: start: 20091028, end: 20091111
  2. THALIDOMIDE CELGENE [Suspect]
     Dosage: 100 MILLIGRAM
     Route: 048
     Dates: end: 20091225

REACTIONS (4)
  - Hemiplegia [Recovering/Resolving]
  - Klebsiella sepsis [Recovered/Resolved]
  - Diabetes mellitus inadequate control [Unknown]
  - Plasma cell myeloma [Unknown]
